FAERS Safety Report 17205632 (Version 1)
Quarter: 2019Q4

REPORT INFORMATION
  Report Type: Spontaneous
  Country: US (occurrence: US)
  Receive Date: 20191227
  Receipt Date: 20191227
  Transmission Date: 20200122
  Serious: No
  Sender: FDA-Public Use
  Company Number: US-TEVA-2019-US-1159838

PATIENT
  Age: 63 Year
  Sex: Female

DRUGS (1)
  1. BUPRENORPHINE. [Suspect]
     Active Substance: BUPRENORPHINE
     Route: 062
     Dates: start: 201906

REACTIONS (4)
  - Hyperhidrosis [Unknown]
  - Erythema [Unknown]
  - Product use issue [Unknown]
  - Pruritus [Unknown]
